FAERS Safety Report 6087719-4 (Version None)
Quarter: 2009Q1

REPORT INFORMATION
  Report Type: 
  Country: None (occurrence: None)
  Receive Date: 20090223
  Receipt Date: 20090213
  Transmission Date: 20090719
  Serious: Yes (Life-Threatening, Hospitalization)
  Sender: FDA-Public Use
  Company Number: IT-ROCHE-613261

PATIENT
  Sex: Female

DRUGS (4)
  1. BONIVA [Suspect]
     Indication: OSTEOPOROSIS
     Route: 048
     Dates: start: 20070101, end: 20081217
  2. COMBISARTAN [Concomitant]
     Route: 048
  3. IDEOS [Concomitant]
  4. LOBIVON [Concomitant]
     Route: 048

REACTIONS (3)
  - APHTHOUS STOMATITIS [None]
  - OESOPHAGEAL VARICES HAEMORRHAGE [None]
  - RECTAL HAEMORRHAGE [None]
